FAERS Safety Report 7953861-3 (Version None)
Quarter: 2011Q4

REPORT INFORMATION
  Report Type: 
  Country: None (occurrence: None)
  Receive Date: 20111202
  Receipt Date: 20111122
  Transmission Date: 20120403
  Serious: Yes (Other)
  Sender: FDA-Public Use
  Company Number: US-JNJFOC-20111112832

PATIENT

DRUGS (3)
  1. KETOROLAC TROMETHAMINE [Suspect]
     Indication: SEDATIVE THERAPY
     Dosage: 6 TIMES
     Route: 065
  2. FENTANYL [Suspect]
     Indication: SEDATIVE THERAPY
     Dosage: 10 TIMES
     Route: 065
  3. ETOMIDATE [Suspect]
     Indication: SEDATIVE THERAPY
     Route: 065

REACTIONS (2)
  - OXYGEN SATURATION DECREASED [None]
  - VOMITING [None]
